FAERS Safety Report 4695900-1 (Version None)
Quarter: 2005Q2

REPORT INFORMATION
  Report Type: 
  Country: None (occurrence: None)
  Receive Date: 20050621
  Receipt Date: 20050613
  Transmission Date: 20051028
  Serious: Yes (Other)
  Sender: FDA-Public Use
  Company Number: GB-GLAXOSMITHKLINE-B0384390A

PATIENT
  Age: 27 Year
  Sex: Female

DRUGS (2)
  1. SENSODYNE TOOTHPASTE [Suspect]
  2. SENSODYNE GENTLE MOUTH RINSE [Suspect]

REACTIONS (1)
  - EPILEPSY [None]
